FAERS Safety Report 4428220-0 (Version None)
Quarter: 2004Q3

REPORT INFORMATION
  Report Type: 
  Country: None (occurrence: None)
  Receive Date: 20040726
  Receipt Date: 20040429
  Transmission Date: 20050211
  Serious: No
  Sender: FDA-Public Use
  Company Number: USA040362353

PATIENT
  Age: 71 Year
  Sex: Female
  Weight: 40 kg

DRUGS (4)
  1. FORTEO [Suspect]
     Indication: OSTEOPOROSIS
     Dosage: 20 UG EVERY OTHER DAY
     Dates: start: 20040313
  2. CALCIUM [Concomitant]
  3. NEXIUM [Concomitant]
  4. MULTI-VITAMIN [Concomitant]

REACTIONS (7)
  - ARTHRALGIA [None]
  - DYSGEUSIA [None]
  - HEADACHE [None]
  - INJECTION SITE HAEMORRHAGE [None]
  - INSOMNIA [None]
  - NAUSEA [None]
  - PAIN IN EXTREMITY [None]
